FAERS Safety Report 4499753-6 (Version None)
Quarter: 2004Q4

REPORT INFORMATION
  Report Type: 
  Country: None (occurrence: None)
  Receive Date: 20041108
  Receipt Date: 20041025
  Transmission Date: 20050328
  Serious: Yes (Other)
  Sender: FDA-Public Use
  Company Number: 2004086343

PATIENT
  Age: 60 Year
  Sex: Female
  Weight: 86.1834 kg

DRUGS (6)
  1. LIPITOR [Suspect]
     Indication: BLOOD CHOLESTEROL
  2. BENADRYL [Suspect]
     Indication: HYPERSENSITIVITY
     Dates: end: 20041025
  3. SUDAFED S.A. [Suspect]
     Indication: ILL-DEFINED DISORDER
     Dates: end: 20041025
  4. ALL OTHER THERAPEUTIC PRODUCTS (ALL OTHER THERAPEUTIC PRODUCTS) [Suspect]
     Indication: BLOOD PRESSURE
  5. CLOPIDOGREL BISULFATE [Suspect]
     Indication: BLOOD CHOLESTEROL
  6. GLUCOSAMINE (GLUCOSAMINE) [Concomitant]

REACTIONS (2)
  - BLOOD PRESSURE DIASTOLIC DECREASED [None]
  - MYOCARDIAL INFARCTION [None]
